FAERS Safety Report 6435350-0 (Version None)
Quarter: 2009Q4

REPORT INFORMATION
  Report Type: 
  Country: None (occurrence: None)
  Receive Date: 20091106
  Receipt Date: 20091027
  Transmission Date: 20100525
  Serious: No
  Sender: FDA-Public Use
  Company Number: 415220

PATIENT
  Age: 49 Year
  Sex: Female
  Weight: 71.2 kg

DRUGS (17)
  1. CARBOPLATIN [Suspect]
     Indication: METASTATIC NEOPLASM
     Dosage: ONCE, INTRAVENOUS
     Route: 042
     Dates: start: 20090925, end: 20090925
  2. CARBOPLATIN [Suspect]
     Indication: OESTROGEN RECEPTOR ASSAY POSITIVE
     Dosage: ONCE, INTRAVENOUS
     Route: 042
     Dates: start: 20090925, end: 20090925
  3. EMEND [Concomitant]
  4. NEURONTIN [Concomitant]
  5. DECADRON [Concomitant]
  6. COMPAZINE /00013302/ [Concomitant]
  7. ATIVAN [Concomitant]
  8. VICODIN [Concomitant]
  9. CIPRO /00697201/ [Concomitant]
  10. SYNTHROID [Concomitant]
  11. OMEPRAZOLE [Concomitant]
  12. SODIUM CHL INJ USP (NORMAL SALINE) (SODIUM CHLORIDE) [Concomitant]
  13. ZOFRAN [Concomitant]
  14. PEPCID [Concomitant]
  15. DEXAMETHASONE [Concomitant]
  16. DIPHENHYDRAMINE HCL ING.,  USP (DIPHENHYDRAMINE) [Concomitant]
  17. SODIIM CHLORIDE INJ (SODIUM CHLORIDE) [Concomitant]

REACTIONS (6)
  - BLOOD PRESSURE INCREASED [None]
  - DRUG HYPERSENSITIVITY [None]
  - DYSGEUSIA [None]
  - ERYTHEMA [None]
  - INFUSION RELATED REACTION [None]
  - OXYGEN SATURATION DECREASED [None]
